FAERS Safety Report 13889027 (Version 1)
Quarter: 2017Q3

REPORT INFORMATION
  Report Type: Other
  Country: CA (occurrence: CA)
  Receive Date: 20170822
  Receipt Date: 20170822
  Transmission Date: 20171127
  Serious: Yes (Other)
  Sender: FDA-Public Use
  Company Number: CA-APOTEX-2017AP016766

PATIENT
  Age: 38 Year
  Sex: Female

DRUGS (2)
  1. APO-IMATINIB [Suspect]
     Active Substance: IMATINIB
     Indication: CHRONIC MYELOID LEUKAEMIA
     Route: 065
  2. GLEEVEC [Suspect]
     Active Substance: IMATINIB MESYLATE
     Indication: CHRONIC MYELOID LEUKAEMIA
     Dosage: 400 MG, UNK
     Route: 048

REACTIONS (3)
  - Eye pain [Recovered/Resolved]
  - Chronic myeloid leukaemia recurrent [Recovered/Resolved]
  - Headache [Recovered/Resolved]
